FAERS Safety Report 5738422-9 (Version None)
Quarter: 2008Q2

REPORT INFORMATION
  Report Type: 
  Country: None (occurrence: None)
  Receive Date: 20080513
  Receipt Date: 20080501
  Transmission Date: 20081010
  Serious: Yes (Other)
  Sender: FDA-Public Use
  Company Number: 2008SP008189

PATIENT
  Age: 42 Year
  Sex: Female

DRUGS (7)
  1. ALBUTEROL [Suspect]
     Indication: DRUG USE FOR UNKNOWN INDICATION
     Dosage: INH
     Route: 055
     Dates: start: 20051231
  2. SULFAMETH/TRIMETH [Suspect]
     Indication: DRUG USE FOR UNKNOWN INDICATION
     Dates: start: 20051231
  3. AVELOX [Concomitant]
  4. CARBAMAZEPINE [Concomitant]
  5. CARISOPRODOL [Concomitant]
  6. AMOXCLAV [Concomitant]
  7. ATENOLOL [Concomitant]

REACTIONS (4)
  - ANAPHYLACTIC REACTION [None]
  - CHOKING [None]
  - INFLAMMATION [None]
  - SINUS DISORDER [None]
